FAERS Safety Report 6316231-X (Version None)
Quarter: 2009Q3

REPORT INFORMATION
  Report Type: 
  Country: None (occurrence: None)
  Receive Date: 20090820
  Receipt Date: 20090720
  Transmission Date: 20100115
  Serious: No
  Sender: FDA-Public Use
  Company Number: PR-BAYER-200922940NA

PATIENT
  Sex: Male

DRUGS (3)
  1. AVELOX [Suspect]
     Indication: BRONCHITIS
     Dosage: TOTAL DAILY DOSE: 400 MG  UNIT DOSE: 400 MG
  2. AVELOX [Suspect]
     Dates: start: 20080101
  3. SINGULAIR [Concomitant]
     Dates: start: 20080101

REACTIONS (1)
  - GENITAL BURNING SENSATION [None]
